FAERS Safety Report 25787995 (Version 1)
Quarter: 2025Q3

REPORT INFORMATION
  Report Type: Spontaneous
  Country: US (occurrence: None)
  Receive Date: 20250910
  Receipt Date: 20250910
  Transmission Date: 20251020
  Serious: Yes (Hospitalization)
  Sender: FDA-CTU
  Company Number: None

PATIENT
  Age: 56 Year
  Sex: Male

DRUGS (12)
  1. ENVARSUS XR [Suspect]
     Active Substance: TACROLIMUS
     Indication: Heart transplant
     Dosage: FREQUENCY : DAILY;?
     Route: 048
     Dates: start: 20230907
  2. AMLODIPINE [Concomitant]
     Active Substance: AMLODIPINE BESYLATE
     Dates: start: 20250310
  3. ASPIRIN [Concomitant]
     Active Substance: ASPIRIN
     Dates: start: 20230615
  4. AZATHIOPRINE [Concomitant]
     Active Substance: AZATHIOPRINE
     Dates: start: 20241104
  5. CALCIUM CITRATE\VITAMIN D [Concomitant]
     Active Substance: CALCIUM CITRATE\VITAMIN D
     Dates: start: 20240408
  6. fluocinolone 0.01% oil [Concomitant]
     Dates: start: 20250814
  7. HUMALOG [Concomitant]
     Active Substance: INSULIN LISPRO
     Dates: start: 20250203
  8. JARDIANCE [Concomitant]
     Active Substance: EMPAGLIFLOZIN
     Dates: start: 20240125
  9. PREDNISONE [Concomitant]
     Active Substance: PREDNISONE
     Dates: start: 20250327
  10. PROPRANOLOL HYDROCHLORIDE [Concomitant]
     Active Substance: PROPRANOLOL HYDROCHLORIDE
     Dates: start: 20240117
  11. ROSUVASTATIN [Concomitant]
     Active Substance: ROSUVASTATIN
     Dates: start: 20240604
  12. TRESIBA [Concomitant]
     Active Substance: INSULIN DEGLUDEC
     Dates: start: 20240305

REACTIONS (5)
  - Chest pain [None]
  - Dyspnoea [None]
  - Weight increased [None]
  - Coronary artery occlusion [None]
  - Heart transplant rejection [None]
